FAERS Safety Report 8996095 (Version 1)
Quarter: 2013Q1

REPORT INFORMATION
  Report Type: Spontaneous
  Country: US (occurrence: US)
  Receive Date: 20130103
  Receipt Date: 20130103
  Transmission Date: 20140127
  Serious: No
  Sender: FDA-Public Use
  Company Number: US-ABBOTT-12P-163-0996080-00

PATIENT
  Sex: Female
  Weight: 72.64 kg

DRUGS (1)
  1. SYNTHROID [Suspect]
     Indication: HYPOTHYROIDISM
     Dates: start: 1999

REACTIONS (3)
  - Pain of skin [Not Recovered/Not Resolved]
  - Rash pruritic [Not Recovered/Not Resolved]
  - Skin burning sensation [Not Recovered/Not Resolved]
